FAERS Safety Report 9703247 (Version 2)
Quarter: 2016Q3

REPORT INFORMATION
  Report Type: Report from Study
  Country: US (occurrence: US)
  Receive Date: 20131122
  Receipt Date: 20160811
  Transmission Date: 20161109
  Serious: Yes (Other)
  Sender: FDA-Public Use
  Company Number: US-ROCHE-1303996

PATIENT
  Sex: Female
  Weight: 131.66 kg

DRUGS (11)
  1. NUTROPIN AQ [Suspect]
     Active Substance: SOMATROPIN
     Indication: DWARFISM
     Route: 058
     Dates: start: 20100710
  2. VITAMIN B6 [Concomitant]
     Active Substance: PYRIDOXINE HYDROCHLORIDE
     Route: 048
  3. SYNTHROID [Concomitant]
     Active Substance: LEVOTHYROXINE SODIUM
     Dosage: EXCEPT SUNDAY
     Route: 048
  4. VITAMIN D3 [Concomitant]
     Active Substance: CHOLECALCIFEROL
     Dosage: 5,000 UNIT TABLET
     Route: 048
  5. CRESTOR [Concomitant]
     Active Substance: ROSUVASTATIN CALCIUM
     Route: 048
  6. NUTROPIN AQ [Suspect]
     Active Substance: SOMATROPIN
     Indication: GROWTH HORMONE DEFICIENCY
     Route: 058
  7. VYVANSE [Concomitant]
     Active Substance: LISDEXAMFETAMINE DIMESYLATE
     Route: 048
  8. ATENOLOL. [Concomitant]
     Active Substance: ATENOLOL
     Route: 048
  9. ATENOLOL. [Concomitant]
     Active Substance: ATENOLOL
     Route: 048
  10. CYTOMEL [Concomitant]
     Active Substance: LIOTHYRONINE SODIUM
     Route: 048
  11. CYTOMEL [Concomitant]
     Active Substance: LIOTHYRONINE SODIUM
     Dosage: DAILY 5 TIMES A WEEK
     Route: 048

REACTIONS (28)
  - Myalgia [Unknown]
  - Dry skin [Unknown]
  - Constipation [Unknown]
  - Malaise [Unknown]
  - Local swelling [Unknown]
  - Heart rate increased [Unknown]
  - Muscular weakness [Unknown]
  - Seasonal allergy [Unknown]
  - Nausea [Recovered/Resolved]
  - Fatigue [Unknown]
  - Hyperhidrosis [Unknown]
  - Alopecia [Unknown]
  - Headache [Unknown]
  - Oedema peripheral [Unknown]
  - Dyspepsia [Unknown]
  - Somnolence [Unknown]
  - Weight increased [Unknown]
  - Muscle spasms [Unknown]
  - Dizziness [Unknown]
  - Temperature intolerance [Unknown]
  - Vision blurred [Unknown]
  - Neck pain [Unknown]
  - Menstruation irregular [Unknown]
  - Palpitations [Unknown]
  - Cardiac murmur [Unknown]
  - Hair texture abnormal [Unknown]
  - Dysphagia [Unknown]
  - Trichorrhexis [Unknown]
